FAERS Safety Report 19211684 (Version 1)
Quarter: 2021Q2

REPORT INFORMATION
  Report Type: Report from Study
  Country: CA (occurrence: CA)
  Receive Date: 20210504
  Receipt Date: 20210504
  Transmission Date: 20210717
  Serious: Yes (Death, Hospitalization)
  Sender: FDA-Public Use
  Company Number: CA-JNJFOC-20210456445

PATIENT
  Age: 79 Year
  Sex: Male
  Weight: 99.85 kg

DRUGS (1)
  1. REMICADE [Suspect]
     Active Substance: INFLIXIMAB
     Indication: RHEUMATOID ARTHRITIS
     Route: 042
     Dates: start: 20060615, end: 20210329

REACTIONS (3)
  - Intestinal perforation [Fatal]
  - Abdominal sepsis [Fatal]
  - Diverticulitis [Fatal]

NARRATIVE: CASE EVENT DATE: 20210419
